FAERS Safety Report 7388783-2 (Version None)
Quarter: 2011Q1

REPORT INFORMATION
  Report Type: 
  Country: None (occurrence: None)
  Receive Date: 20110329
  Receipt Date: 20110329
  Transmission Date: 20110831
  Serious: Yes (Disabling, Other)
  Sender: FDA-Public Use
  Company Number: None

PATIENT
  Sex: Female
  Weight: 69.4003 kg

DRUGS (4)
  1. ABRAXANE [Suspect]
     Indication: BREAST CANCER METASTATIC
     Dosage: 170MG. 3X MNTH. RTE.041
     Dates: start: 20090901, end: 20110304
  2. ZOMETA [Concomitant]
  3. ZOFRAN [Concomitant]
  4. FOSOLDEX [Concomitant]

REACTIONS (3)
  - METASTASES TO BLADDER [None]
  - RENAL DISORDER [None]
  - BLADDER NEOPLASM [None]
